FAERS Safety Report 8525728-3 (Version None)
Quarter: 2012Q3

REPORT INFORMATION
  Report Type: 
  Country: None (occurrence: None)
  Receive Date: 20120720
  Receipt Date: 20120711
  Transmission Date: 20120928
  Serious: Yes (Hospitalization, Other)
  Sender: FDA-Public Use
  Company Number: US-MSD-1012USA02366

PATIENT

DRUGS (5)
  1. FOSAMAX [Suspect]
     Dosage: 70 MG, QW
     Route: 048
  2. MK-9278 [Concomitant]
     Dosage: UNK UNK, QD
  3. ALENDRONATE SODIUM [Suspect]
     Dosage: 70 MG, UNK
     Route: 048
     Dates: end: 20100125
  4. FOSAMAX [Suspect]
     Indication: OSTEOPOROSIS
     Dosage: 10 MG, QD
     Route: 048
     Dates: start: 19980101
  5. VERELAN [Concomitant]
     Indication: HYPERTENSION
     Dosage: 120 MG, QD
     Dates: start: 19921109

REACTIONS (40)
  - URINARY TRACT INFECTION [None]
  - HAEMORRHAGIC ANAEMIA [None]
  - BLOOD SODIUM DECREASED [None]
  - HYPOTENSION [None]
  - CATARACT [None]
  - NAUSEA [None]
  - SINUSITIS [None]
  - PULMONARY FIBROSIS [None]
  - VERTEBRAL FORAMINAL STENOSIS [None]
  - RENAL CYST [None]
  - INTESTINAL MASS [None]
  - GINGIVAL RECESSION [None]
  - FEMUR FRACTURE [None]
  - FALL [None]
  - ANAEMIA [None]
  - INTERVERTEBRAL DISC DEGENERATION [None]
  - LYMPHADENOPATHY [None]
  - CYST [None]
  - FOOT FRACTURE [None]
  - OSTEOARTHRITIS [None]
  - BURSITIS [None]
  - FOLLICULITIS [None]
  - COLONIC POLYP [None]
  - ATELECTASIS [None]
  - EXTRASYSTOLES [None]
  - DIVERTICULUM [None]
  - CYSTITIS [None]
  - BLOOD CHOLESTEROL INCREASED [None]
  - SECRETION DISCHARGE [None]
  - URINE OUTPUT DECREASED [None]
  - ARTHRALGIA [None]
  - BLOOD CALCIUM DECREASED [None]
  - ABDOMINAL PAIN LOWER [None]
  - RENAL DISORDER [None]
  - GINGIVAL BLEEDING [None]
  - FRACTURE DELAYED UNION [None]
  - FRACTURE NONUNION [None]
  - HYPERLIPIDAEMIA [None]
  - CONSTIPATION [None]
  - TINNITUS [None]
